FAERS Safety Report 6667823-X (Version None)
Quarter: 2010Q2

REPORT INFORMATION
  Report Type: 
  Country: None (occurrence: None)
  Receive Date: 20100405
  Receipt Date: 20100305
  Transmission Date: 20101027
  Serious: No
  Sender: FDA-Public Use
  Company Number: US-BAYER-201012896BCC

PATIENT
  Age: 51 Year
  Sex: Male
  Weight: 79 kg

DRUGS (3)
  1. ALEVE (CAPLET) [Suspect]
     Indication: BACK PAIN
     Dosage: TOTAL DAILY DOSE: 880 MG  UNIT DOSE: 220 MG
     Route: 048
     Dates: start: 20091201
  2. SIMVASTATIN [Concomitant]
     Route: 065
  3. UNKNOWN BLOOD PRESSURE MEDICATION [Concomitant]
     Indication: HYPERTENSION
     Route: 065

REACTIONS (1)
  - BACK PAIN [None]
